FAERS Safety Report 11185964 (Version 1)
Quarter: 2015Q2

REPORT INFORMATION
  Report Type: Spontaneous
  Country: US (occurrence: US)
  Receive Date: 20150612
  Receipt Date: 20150612
  Transmission Date: 20150821
  Serious: Yes (Other)
  Sender: FDA-Public Use
  Company Number: US-TARO-2015TAR00536

PATIENT
  Sex: Female

DRUGS (3)
  1. LAMOTRIGINE TABLETS 150 MG [Suspect]
     Active Substance: LAMOTRIGINE
     Indication: SEIZURE
     Dosage: 150 MG, 2X/DAY
     Route: 048
     Dates: end: 20150430
  2. LAMOTRIGINE TABLETS 150 MG [Suspect]
     Active Substance: LAMOTRIGINE
     Dosage: 150 MG, 1X/DAY
     Route: 048
     Dates: start: 20150501
  3. LAMOTRIGINE EXTENDED RELEASE 200 MG (MANUFACTURER UNKNOWN) [Suspect]
     Active Substance: LAMOTRIGINE
     Indication: SEIZURE
     Dosage: 200 MG, 1X/DAY
     Route: 048
     Dates: start: 20150501

REACTIONS (4)
  - Pregnancy [None]
  - Abortion spontaneous [Unknown]
  - Exposure during pregnancy [Recovered/Resolved]
  - Maternal exposure during pregnancy [None]

NARRATIVE: CASE EVENT DATE: 2015
